FAERS Safety Report 20430081 (Version 1)
Quarter: 2022Q1

REPORT INFORMATION
  Report Type: Report from Study
  Country: FR (occurrence: FR)
  Receive Date: 20220204
  Receipt Date: 20220204
  Transmission Date: 20220423
  Serious: Yes (Hospitalization, Other)
  Sender: FDA-Public Use
  Company Number: FR-SERVIER-S20001971

PATIENT

DRUGS (9)
  1. ONCASPAR [Suspect]
     Active Substance: PEGASPARGASE
     Indication: Acute lymphocytic leukaemia
     Dosage: 3900 IU ON DAYS 4 AND 43
     Route: 042
     Dates: start: 20191108, end: 20191227
  2. VINCRISTINE SULFATE [Suspect]
     Active Substance: VINCRISTINE SULFATE
     Indication: Acute lymphocytic leukaemia
     Dosage: 2 MG ON D1, D8, D15, D43, D50
     Route: 042
     Dates: start: 20191105, end: 20200103
  3. DEXAMETHASONE [Suspect]
     Active Substance: DEXAMETHASONE
     Indication: Acute lymphocytic leukaemia
     Dosage: 10.5 MG, ON D1 TO D7 AND D15 TO D21
     Route: 048
     Dates: start: 20191105, end: 20191125
  4. CYTARABINE [Suspect]
     Active Substance: CYTARABINE
     Indication: Acute lymphocytic leukaemia
     Dosage: 30 MG ON DAYS 4 AND 31
     Route: 037
     Dates: start: 20191108, end: 20191216
  5. CYTARABINE [Suspect]
     Active Substance: CYTARABINE
     Dosage: 115 MG, ON D31 TO D34, D38 TO D41
     Route: 037
     Dates: start: 20191216, end: 20191226
  6. THIOGUANINE [Suspect]
     Active Substance: THIOGUANINE
     Indication: Acute lymphocytic leukaemia
     Dosage: 94 MG, ON DAYS 29-42
     Route: 048
     Dates: start: 20191212, end: 20191227
  7. TN UNSPECIFIED [Concomitant]
     Indication: Acute lymphocytic leukaemia
     Dosage: 15 MG ON DAYS 4 AND 31
     Route: 037
     Dates: start: 20191108, end: 20191216
  8. TN UNSPECIFIED [Concomitant]
     Indication: Acute lymphocytic leukaemia
     Dosage: 15 MG ON DAYS 4 AND 31
     Route: 037
     Dates: start: 20191108, end: 20191216
  9. TN UNSPECIFIED [Concomitant]
     Indication: Acute lymphocytic leukaemia
     Dosage: 39 MG, QD
     Route: 042
     Dates: start: 20191105, end: 20191119

REACTIONS (3)
  - Intervertebral discitis [Not Recovered/Not Resolved]
  - Escherichia sepsis [Not Recovered/Not Resolved]
  - Hyperbilirubinaemia [Recovered/Resolved]

NARRATIVE: CASE EVENT DATE: 20191127
